FAERS Safety Report 7860272-8 (Version None)
Quarter: 2011Q4

REPORT INFORMATION
  Report Type: 
  Country: None (occurrence: None)
  Receive Date: 20111027
  Receipt Date: 20111020
  Transmission Date: 20120403
  Serious: Yes (Other)
  Sender: FDA-Public Use
  Company Number: AU-B.I. PHARMACEUTICALS,INC./RIDGEFIELD-2011-AU-01626AU

PATIENT
  Sex: Female
  Weight: 88 kg

DRUGS (8)
  1. PREDNISOLONE [Concomitant]
     Dosage: 25 MG
     Dates: start: 20110727
  2. FUROSEMIDE [Concomitant]
     Dosage: 160 MG
     Dates: start: 20110727
  3. AMIODARONE HCL [Concomitant]
     Dosage: 200 MCG
     Dates: start: 20110727
  4. RAMIPRIL [Concomitant]
     Dosage: 10 MG
  5. PRADAXA [Suspect]
     Indication: ATRIAL FIBRILLATION
     Dosage: 300 MG
     Dates: start: 20110728, end: 20110805
  6. DIGOXIN [Suspect]
     Dosage: 187.5 MCG
     Dates: start: 20110601, end: 20110816
  7. PRADAXA [Suspect]
     Dosage: 150 MG
     Dates: start: 20110809, end: 20110814
  8. FLUTICASONE PROPIONATE/SALMETEROL [Concomitant]

REACTIONS (8)
  - DEPRESSION [None]
  - ABDOMINAL DISTENSION [None]
  - SUICIDAL IDEATION [None]
  - FEELING ABNORMAL [None]
  - DYSPNOEA [None]
  - FATIGUE [None]
  - NAUSEA [None]
  - MALAISE [None]
